FAERS Safety Report 20964601 (Version 9)
Quarter: 2022Q3

REPORT INFORMATION
  Report Type: Report from Study
  Country: FR (occurrence: FR)
  Receive Date: 20220615
  Receipt Date: 20220831
  Transmission Date: 20221027
  Serious: Yes (Other)
  Sender: FDA-Public Use
  Company Number: FR-GILEAD-2022-0581120

PATIENT
  Age: 44 Year
  Sex: Female
  Weight: 92 kg

DRUGS (6)
  1. SACITUZUMAB GOVITECAN [Suspect]
     Active Substance: SACITUZUMAB GOVITECAN
     Indication: Breast cancer
     Dosage: 7.5 MG/KG, C5D1 AND D8
     Route: 042
     Dates: start: 20220629, end: 20220720
  2. SACITUZUMAB GOVITECAN [Suspect]
     Active Substance: SACITUZUMAB GOVITECAN
     Dosage: 7.5 MG/KG, C5D1 AND D8
     Route: 042
     Dates: start: 20220608, end: 20220615
  3. SACITUZUMAB GOVITECAN [Suspect]
     Active Substance: SACITUZUMAB GOVITECAN
     Dosage: 7.5 MG/KG, C4D1 AND D8
     Route: 042
     Dates: start: 20220512, end: 20220525
  4. SACITUZUMAB GOVITECAN [Suspect]
     Active Substance: SACITUZUMAB GOVITECAN
     Dosage: 7.5 MG/KG, C3D1 AND D8
     Route: 042
     Dates: start: 20220512, end: 20220525
  5. SACITUZUMAB GOVITECAN [Suspect]
     Active Substance: SACITUZUMAB GOVITECAN
     Dosage: 7.5 MG/KG, C2 DATES NOT DETERMINED
     Route: 042
  6. SACITUZUMAB GOVITECAN [Suspect]
     Active Substance: SACITUZUMAB GOVITECAN
     Dosage: 10 MG/KG, C1 DAY 1 AND C1D8
     Route: 042
     Dates: start: 20220324, end: 20220331

REACTIONS (8)
  - Neutropenia [Recovered/Resolved]
  - Device related infection [Recovered/Resolved]
  - Back pain [Recovered/Resolved]
  - Neutropenia [Recovered/Resolved]
  - COVID-19 [Recovered/Resolved]
  - General physical condition abnormal [Recovered/Resolved]
  - Nausea [Recovered/Resolved]
  - Off label use [Unknown]

NARRATIVE: CASE EVENT DATE: 20220329
